FAERS Safety Report 21376175 (Version 2)
Quarter: 2022Q4

REPORT INFORMATION
  Report Type: Spontaneous
  Country: FR (occurrence: FR)
  Receive Date: 20220926
  Receipt Date: 20221010
  Transmission Date: 20230112
  Serious: Yes (Hospitalization, Other)
  Sender: FDA-Public Use
  Company Number: None

PATIENT

DRUGS (7)
  1. ACYCLOVIR [Suspect]
     Active Substance: ACYCLOVIR
     Indication: Meningoencephalitis viral
     Dosage: UNK
     Route: 042
     Dates: start: 20220825, end: 20220916
  2. CERTICAN [Suspect]
     Active Substance: EVEROLIMUS
     Indication: Prophylaxis against transplant rejection
     Dosage: UNK
     Route: 065
  3. TACROLIMUS [Suspect]
     Active Substance: TACROLIMUS
     Indication: Prophylaxis against transplant rejection
     Dosage: UNK
     Route: 065
  4. KEPPRA [Suspect]
     Active Substance: LEVETIRACETAM
     Indication: Generalised tonic-clonic seizure
     Dosage: 1000 MG, QD
     Route: 042
     Dates: start: 20220829, end: 20220908
  5. KEPPRA [Suspect]
     Active Substance: LEVETIRACETAM
     Dosage: 2000 MG, QD
     Route: 042
     Dates: start: 20220825, end: 20220829
  6. KEPPRA [Suspect]
     Active Substance: LEVETIRACETAM
     Dosage: 250 MG, QD
     Route: 042
     Dates: start: 20220920, end: 20220922
  7. KEPPRA [Suspect]
     Active Substance: LEVETIRACETAM
     Dosage: 500 MG, QD
     Route: 042
     Dates: start: 20220908, end: 20220917

REACTIONS (3)
  - Bicytopenia [Recovering/Resolving]
  - Acute kidney injury [Recovering/Resolving]
  - Encephalopathy [Not Recovered/Not Resolved]

NARRATIVE: CASE EVENT DATE: 20220825
